FAERS Safety Report 7077646-8 (Version None)
Quarter: 2010Q4

REPORT INFORMATION
  Report Type: 
  Country: None (occurrence: None)
  Receive Date: 20101101
  Receipt Date: 20101018
  Transmission Date: 20110411
  Serious: Yes (Hospitalization)
  Sender: FDA-Public Use
  Company Number: BR-MEDIMMUNE-MEDI-0011673

PATIENT
  Sex: Male
  Weight: 8.8 kg

DRUGS (3)
  1. SYNAGIS [Suspect]
     Indication: CARDIOMYOPATHY
     Route: 030
     Dates: start: 20100528
  2. SYNAGIS [Suspect]
     Indication: PULMONARY ARTERY ATRESIA
  3. CAPTOPRIL [Concomitant]
     Indication: BLOOD PRESSURE
     Route: 048
     Dates: start: 20100622

REACTIONS (5)
  - BRONCHOSPASM [None]
  - HEPATIC FUNCTION ABNORMAL [None]
  - HEPATITIS [None]
  - SEPSIS [None]
  - SHUNT MALFUNCTION [None]
